FAERS Safety Report 23397764 (Version 3)
Quarter: 2024Q1

REPORT INFORMATION
  Report Type: Report from Study
  Country: FR (occurrence: FR)
  Receive Date: 20240112
  Receipt Date: 20240201
  Transmission Date: 20240410
  Serious: Yes (Life-Threatening, Hospitalization)
  Sender: FDA-Public Use
  Company Number: FR-ROCHE-3482563

PATIENT
  Age: 75 Year
  Sex: Male

DRUGS (5)
  1. PACLITAXEL [Suspect]
     Active Substance: PACLITAXEL
     Indication: Non-small cell lung cancer
     Dosage: 200 MILLIGRAM/SQ. METER, Q3W, ON 24/DEC/2023 HE RECEIVED LAST DOSE OF STUDY DRUG
     Route: 042
     Dates: start: 20231208, end: 20231224
  2. BEVACIZUMAB [Suspect]
     Active Substance: BEVACIZUMAB
     Indication: Non-small cell lung cancer
     Dosage: 15 MILLIGRAM/KILOGRAM, Q3W, ON 24/DEC/2023 HE RECEIVED LAST DOSE OF STUDY DRUG
     Route: 042
     Dates: start: 20231208, end: 20231224
  3. ATEZOLIZUMAB [Concomitant]
     Active Substance: ATEZOLIZUMAB
     Indication: Non-small cell lung cancer
     Dosage: 1200 MILLIGRAM, Q3W, ON 24/DEC/2023 RECEIVED LAST DOSE OF STUDY DRUG
     Route: 065
     Dates: start: 20231208, end: 20231224
  4. AMOXICILLIN\CLAVULANATE POTASSIUM [Concomitant]
     Active Substance: AMOXICILLIN\CLAVULANATE POTASSIUM
     Dosage: 1 GRAM
     Route: 065
     Dates: start: 20231224
  5. ACETAMINOPHEN [Concomitant]
     Active Substance: ACETAMINOPHEN
     Dosage: UNK UNK, PRN, IF NEEDED
     Route: 065

REACTIONS (2)
  - Pneumonitis [Not Recovered/Not Resolved]
  - Pneumonia [Recovered/Resolved]

NARRATIVE: CASE EVENT DATE: 20231224
